FAERS Safety Report 9252220 (Version 1)
Quarter: 2013Q1

REPORT INFORMATION
  Report Type: Spontaneous
  Country: US (occurrence: None)
  Receive Date: 20130305
  Receipt Date: 20130305
  Transmission Date: 20140127
  Serious: Yes (Other)
  Sender: FDA-Public Use
  Company Number: 163-21880-12082695

PATIENT
  Age: 86 Year
  Sex: Female

DRUGS (14)
  1. REVLIMID [Suspect]
     Indication: MYELODYSPLASTIC SYNDROME
     Dosage: 1 IN 1 D
     Route: 048
     Dates: start: 201108, end: 201206
  2. SYNTHROID [Concomitant]
  3. NASONEX [Concomitant]
  4. CITALOPRAM (CITALOPRAM) [Concomitant]
  5. SIMVASTATIN (SIMVASTATIN) [Concomitant]
  6. DIGOXIN (DIGOXIN) [Suspect]
  7. ALBUTEROL (SALBUTAMOL) [Suspect]
  8. ADVAIR [Suspect]
  9. ZANTAC (RANITIDINE HYDROCHLORIDE) [Suspect]
  10. MV (MV) (UNKNOWN) [Concomitant]
  11. SPIRIVA (TIOTROPIUM BROMIDE) [Concomitant]
  12. VITA D (COLECALCIFEROL) [Concomitant]
  13. PACKED RED BLOOD CELLS [Concomitant]
  14. PROCRIT [Concomitant]

REACTIONS (3)
  - Haemoglobin decreased [None]
  - Thrombocytopenia [None]
  - Drug ineffective [None]
